FAERS Safety Report 12053813 (Version 1)
Quarter: 2016Q1

REPORT INFORMATION
  Report Type: Spontaneous
  Country: US (occurrence: US)
  Receive Date: 20160209
  Receipt Date: 20160209
  Transmission Date: 20160526
  Serious: No
  Sender: FDA-Public Use
  Company Number: US-SA-2015SA181601

PATIENT
  Age: 79 Year
  Sex: Female
  Weight: 60 kg

DRUGS (12)
  1. ALIROCUMAB PREFILLED PEN [Concomitant]
     Active Substance: ALIROCUMAB
     Dates: start: 20151028
  2. PRALUENT [Suspect]
     Active Substance: ALIROCUMAB
     Indication: HYPERCHOLESTEROLAEMIA
     Route: 058
     Dates: start: 20151028
  3. NEXIUM [Concomitant]
     Active Substance: ESOMEPRAZOLE MAGNESIUM
     Dosage: STRENGTH: 40MG
  4. ELIQUIS [Concomitant]
     Active Substance: APIXABAN
     Dosage: STRENGTH: 5MG
  5. VITAMIN B12 [Concomitant]
     Active Substance: CYANOCOBALAMIN
  6. MAGNESIUM [Concomitant]
     Active Substance: MAGNESIUM
     Dosage: STRENGTH: 200MG
  7. METOPROLOL. [Concomitant]
     Active Substance: METOPROLOL
     Dosage: STRENGTH: 25MG
  8. TRAMADOL. [Concomitant]
     Active Substance: TRAMADOL
     Dosage: STRENGTH: 50MG
  9. IMURAN [Concomitant]
     Active Substance: AZATHIOPRINE
     Dosage: STRENGTH: 50MG
  10. CYCLOSPORIN [Concomitant]
     Active Substance: CYCLOSPORINE
     Dosage: STRENGTH: 300MG
  11. AMBIEN [Concomitant]
     Active Substance: ZOLPIDEM TARTRATE
     Dosage: STRENGTH: 10MG
  12. VITAMIN D3 [Concomitant]
     Active Substance: CHOLECALCIFEROL

REACTIONS (11)
  - Malaise [Recovered/Resolved]
  - Feeling abnormal [Recovered/Resolved]
  - Pyrexia [Unknown]
  - Palpitations [Unknown]
  - Oropharyngeal pain [Unknown]
  - Nausea [Unknown]
  - Condition aggravated [Unknown]
  - Bone pain [Recovered/Resolved]
  - Myalgia [Recovered/Resolved]
  - Memory impairment [Recovered/Resolved]
  - Rhinorrhoea [Unknown]

NARRATIVE: CASE EVENT DATE: 20151028
